FAERS Safety Report 19194642 (Version 1)
Quarter: 2021Q2

REPORT INFORMATION
  Report Type: Spontaneous
  Country: US (occurrence: US)
  Receive Date: 20210429
  Receipt Date: 20210429
  Transmission Date: 20210717
  Serious: Yes (Other)
  Sender: FDA-Public Use
  Company Number: US-ROCHE-2821132

PATIENT
  Sex: Male

DRUGS (1)
  1. OCREVUS [Suspect]
     Active Substance: OCRELIZUMAB
     Indication: MULTIPLE SCLEROSIS
     Dosage: MAINTENANCE DOSE WILL BE 600 MG EVERY 6 MONTHS
     Route: 042
     Dates: start: 202102

REACTIONS (1)
  - Relapsing multiple sclerosis [Unknown]
